FAERS Safety Report 11704919 (Version 2)
Quarter: 2015Q4

REPORT INFORMATION
  Report Type: Spontaneous
  Country: US (occurrence: US)
  Receive Date: 20151106
  Receipt Date: 20151221
  Transmission Date: 20160304
  Serious: No
  Sender: FDA-Public Use
  Company Number: US-GLAXOSMITHKLINE-US2015GSK158623

PATIENT
  Sex: Female
  Weight: 53.97 kg

DRUGS (5)
  1. ADVAIR DISKUS [Suspect]
     Active Substance: FLUTICASONE PROPIONATE\SALMETEROL XINAFOATE
     Indication: PRODUCT USED FOR UNKNOWN INDICATION
     Dosage: UNK
  2. FLOVENT [Suspect]
     Active Substance: FLUTICASONE PROPIONATE
     Dosage: 44 UG, UNK, 1PUFF, BID TO 8 PUFFS PER DAY
     Dates: start: 20150327
  3. FLOVENT [Suspect]
     Active Substance: FLUTICASONE PROPIONATE
     Dosage: 220 UG, UNK
  4. FLOVENT [Suspect]
     Active Substance: FLUTICASONE PROPIONATE
     Indication: PRODUCT USED FOR UNKNOWN INDICATION
     Dosage: 220 UG, UNK
     Route: 055
     Dates: start: 20150306, end: 20150327
  5. ALBUTEROL INHALATIONAL POWDER [Suspect]
     Active Substance: ALBUTEROL
     Indication: PRODUCT USED FOR UNKNOWN INDICATION
     Dosage: UNK, Q 2 HOURS, MORE OFTEN

REACTIONS (11)
  - Emotional disorder [Unknown]
  - Drug ineffective [Unknown]
  - Drug effect increased [Unknown]
  - Chronic obstructive pulmonary disease [Unknown]
  - Dyspnoea [Recovering/Resolving]
  - Back pain [Unknown]
  - Overdose [Unknown]
  - Emergency care examination [Unknown]
  - Drug intolerance [Unknown]
  - Ill-defined disorder [Unknown]
  - Extra dose administered [Unknown]
